FAERS Safety Report 14304642 (Version 1)
Quarter: 2017Q4

REPORT INFORMATION
  Report Type: Report from Study
  Country: JP (occurrence: JP)
  Receive Date: 20171219
  Receipt Date: 20171219
  Transmission Date: 20180321
  Serious: Yes (Other)
  Sender: FDA-Public Use
  Company Number: JP-OTSUKA-03100-JPN-07-0250

PATIENT
  Age: 36 Year
  Sex: Female
  Weight: 58.3 kg

DRUGS (16)
  1. LODOPIN [Concomitant]
     Active Substance: ZOTEPINE
     Indication: SCHIZOPHRENIA
     Dosage: UNK, UNK
     Route: 048
     Dates: end: 20070517
  2. AKINETON [Concomitant]
     Active Substance: BIPERIDEN HYDROCHLORIDE
     Indication: PRODUCT USED FOR UNKNOWN INDICATION
     Dosage: UNK
     Route: 048
  3. PURSENNID [Concomitant]
     Active Substance: SENNOSIDES A AND B
     Indication: SCHIZOPHRENIA
     Dosage: UNK
     Route: 048
  4. LODOPIN [Concomitant]
     Active Substance: ZOTEPINE
     Dosage: UNK N/A, UNK
     Route: 048
     Dates: start: 20070528, end: 20070528
  5. VALPROATE SODIUM. [Concomitant]
     Active Substance: VALPROATE SODIUM
     Indication: SCHIZOPHRENIA
     Dosage: 800 MG, UNK
     Route: 048
  6. SENNA [Concomitant]
     Active Substance: SENNA LEAF\SENNOSIDES\SENNOSIDES A AND B
     Indication: PRODUCT USED FOR UNKNOWN INDICATION
     Dosage: 36 MG, UNK
     Route: 048
  7. ARIPIPRAZOLE. [Suspect]
     Active Substance: ARIPIPRAZOLE
     Indication: SCHIZOPHRENIA
     Dosage: 6 MG, BID
     Route: 048
     Dates: start: 20070406, end: 20070517
  8. LODOPIN [Concomitant]
     Active Substance: ZOTEPINE
     Dosage: UNK
     Route: 048
     Dates: start: 20070521, end: 20070527
  9. ARIPIPRAZOLE. [Suspect]
     Active Substance: ARIPIPRAZOLE
     Dosage: 6 MG, BID
     Route: 048
     Dates: start: 20070521, end: 20070527
  10. PAXIL [Concomitant]
     Active Substance: PAROXETINE HYDROCHLORIDE
     Indication: DEPRESSIVE SYMPTOM
     Dosage: UNK
     Route: 048
     Dates: start: 20060519, end: 20070517
  11. ARIPIPRAZOLE. [Suspect]
     Active Substance: ARIPIPRAZOLE
     Dosage: 12 MG, BID
     Route: 048
     Dates: start: 20070518, end: 20070520
  12. DEPAKENE [Concomitant]
     Active Substance: VALPROIC ACID
     Indication: SCHIZOPHRENIA
     Dosage: UNK
     Route: 048
  13. LODOPIN [Concomitant]
     Active Substance: ZOTEPINE
     Dosage: UNK, UNK
     Route: 048
     Dates: start: 20070518, end: 20070520
  14. LEXOTAN [Concomitant]
     Active Substance: BROMAZEPAM
     Indication: SCHIZOPHRENIA
     Dosage: UNK
     Route: 048
  15. LODOPIN [Concomitant]
     Active Substance: ZOTEPINE
     Dosage: UNK N/A, UNK
     Route: 048
     Dates: start: 20070529
  16. PAROXETINE HCL [Concomitant]
     Active Substance: PAROXETINE HYDROCHLORIDE
     Indication: DEPRESSIVE SYMPTOM
     Dosage: 40 MG, UNK
     Route: 048
     Dates: start: 20060519, end: 20070517

REACTIONS (4)
  - Delusion [Recovering/Resolving]
  - Agitation [Recovering/Resolving]
  - Drug ineffective [Recovering/Resolving]
  - Hallucination [Recovering/Resolving]

NARRATIVE: CASE EVENT DATE: 20070419
